FAERS Safety Report 20948085 (Version 1)
Quarter: 2022Q2

REPORT INFORMATION
  Report Type: Spontaneous
  Country: FR (occurrence: FR)
  Receive Date: 20220611
  Receipt Date: 20220611
  Transmission Date: 20220721
  Serious: Yes (Hospitalization)
  Sender: FDA-Public Use
  Company Number: None

PATIENT
  Age: 68 Year
  Sex: Male
  Weight: 68 kg

DRUGS (4)
  1. APIXABAN [Suspect]
     Active Substance: APIXABAN
     Indication: Pulmonary embolism
     Dosage: 10 MG, BID
     Route: 048
     Dates: start: 20220524, end: 20220524
  2. APIXABAN [Suspect]
     Active Substance: APIXABAN
     Dosage: 10 MG
     Route: 048
     Dates: start: 20220525, end: 20220525
  3. LOVENOX [Suspect]
     Active Substance: ENOXAPARIN SODIUM
     Indication: Pulmonary embolism
     Dosage: 7000 IU, BID
     Route: 058
     Dates: start: 20220522, end: 20220523
  4. INNOHEP [Suspect]
     Active Substance: TINZAPARIN SODIUM
     Indication: Pulmonary embolism
     Dosage: 14000 IU, QD
     Route: 058
     Dates: start: 20220525, end: 20220527

REACTIONS (2)
  - Rash macular [Not Recovered/Not Resolved]
  - Hepatic enzyme increased [Recovering/Resolving]

NARRATIVE: CASE EVENT DATE: 20220524
